FAERS Safety Report 17315003 (Version 1)
Quarter: 2020Q1

REPORT INFORMATION
  Report Type: Spontaneous
  Country: US (occurrence: US)
  Receive Date: 20200124
  Receipt Date: 20200124
  Transmission Date: 20200409
  Serious: No
  Sender: FDA-Public Use
  Company Number: US-MYLANLABS-2020M1004693

PATIENT
  Sex: Female
  Weight: 127 kg

DRUGS (1)
  1. DIGOXIN. [Suspect]
     Active Substance: DIGOXIN
     Indication: HEART RATE ABNORMAL
     Dosage: 90 MILLIGRAM, BID
     Route: 048

REACTIONS (1)
  - Joint swelling [Not Recovered/Not Resolved]
